FAERS Safety Report 15665137 (Version 1)
Quarter: 2018Q4

REPORT INFORMATION
  Report Type: Report from Study
  Country: ES (occurrence: ES)
  Receive Date: 20181128
  Receipt Date: 20181128
  Transmission Date: 20190205
  Serious: Yes (Other)
  Sender: FDA-Public Use
  Company Number: ES-SA-2018SA110636

PATIENT
  Age: 73 Year
  Sex: Female
  Weight: 81 kg

DRUGS (4)
  1. TRULICITY [Concomitant]
     Active Substance: DULAGLUTIDE
     Indication: TYPE 2 DIABETES MELLITUS
     Dosage: UNK UNK,UNK
     Route: 058
  2. SYNJARDY [Concomitant]
     Active Substance: EMPAGLIFLOZIN\METFORMIN HYDROCHLORIDE
     Indication: TYPE 2 DIABETES MELLITUS
     Dosage: UNK UNK,UNK
     Route: 048
  3. METFORMIN [Concomitant]
     Active Substance: METFORMIN HYDROCHLORIDE
     Indication: TYPE 2 DIABETES MELLITUS
     Dosage: UNK UNK,UNK
     Route: 048
  4. INSULIN GLARGINE [Suspect]
     Active Substance: INSULIN GLARGINE
     Indication: TYPE 2 DIABETES MELLITUS
     Dosage: 110 IU,QD
     Route: 058
     Dates: start: 2016

REACTIONS (23)
  - Vomiting [Recovered/Resolved]
  - Blood glucose decreased [Recovered/Resolved]
  - Nervousness [Unknown]
  - Fear [Unknown]
  - Fall [Unknown]
  - Peripheral swelling [Not Recovered/Not Resolved]
  - Haemorrhage [Unknown]
  - Pruritus [Recovered/Resolved]
  - Gait disturbance [Unknown]
  - Drug ineffective [Unknown]
  - Anxiety [Recovered/Resolved]
  - Insomnia [Unknown]
  - Visual impairment [Unknown]
  - Varicose vein [Unknown]
  - Nervousness [Recovered/Resolved]
  - Malaise [Recovering/Resolving]
  - Pain in extremity [Not Recovered/Not Resolved]
  - Fatigue [Recovered/Resolved]
  - Cough [Unknown]
  - Gait disturbance [Not Recovered/Not Resolved]
  - Weight decreased [Unknown]
  - Fatigue [Unknown]
  - Pain [Unknown]

NARRATIVE: CASE EVENT DATE: 2017
